FAERS Safety Report 6494211-1 (Version None)
Quarter: 2009Q4

REPORT INFORMATION
  Report Type: 
  Country: None (occurrence: None)
  Receive Date: 20091214
  Receipt Date: 20090122
  Transmission Date: 20100525
  Serious: No
  Sender: FDA-Public Use
  Company Number: US-BRISTOL-MYERS SQUIBB COMPANY-14479588

PATIENT
  Age: 73 Year
  Sex: Male
  Weight: 91 kg

DRUGS (1)
  1. ABILIFY [Suspect]
     Dates: start: 20080101

REACTIONS (3)
  - COUGH [None]
  - DRY MOUTH [None]
  - DYSPHONIA [None]
